FAERS Safety Report 11286872 (Version 1)
Quarter: 2015Q3

REPORT INFORMATION
  Report Type: Spontaneous
  Country: US (occurrence: US)
  Receive Date: 20150721
  Receipt Date: 20150721
  Transmission Date: 20151125
  Serious: Yes (Other)
  Sender: FDA-Public Use
  Company Number: US-SA-2015SA102869

PATIENT
  Sex: Female

DRUGS (1)
  1. GOLD BOND ULTIMATE HEALING CONCENTRATED THERAPY CREAM [Suspect]
     Active Substance: DIMETHICONE\PETROLATUM
     Route: 065

REACTIONS (1)
  - Blindness transient [Recovered/Resolved]
